FAERS Safety Report 7070130-7 (Version None)
Quarter: 2010Q4

REPORT INFORMATION
  Report Type: 
  Country: None (occurrence: None)
  Receive Date: 20101028
  Receipt Date: 20100913
  Transmission Date: 20110411
  Serious: No
  Sender: FDA-Public Use
  Company Number: US-WYE-H17500610

PATIENT
  Age: 58 Year
  Sex: Female
  Weight: 68.1 kg

DRUGS (6)
  1. ADVIL [Suspect]
     Indication: HEADACHE
     Dosage: 2 LIQUI-GELS EVERY 5-6 HOURS
     Route: 048
     Dates: start: 20090101, end: 20100908
  2. ADVIL [Suspect]
     Indication: ARTHRITIS
  3. OSCAL [Concomitant]
  4. VITAMINS [Concomitant]
  5. ESTROGENS/METHYLTESTOSTERONE [Concomitant]
  6. LEVOXYL [Concomitant]

REACTIONS (3)
  - BLOOD PRESSURE INCREASED [None]
  - DRUG WITHDRAWAL SYNDROME [None]
  - HEADACHE [None]
